FAERS Safety Report 10891095 (Version 1)
Quarter: 2015Q1

REPORT INFORMATION
  Report Type: Spontaneous
  Country: US (occurrence: US)
  Receive Date: 20150305
  Receipt Date: 20150305
  Transmission Date: 20150721
  Serious: No
  Sender: FDA-Public Use
  Company Number: US-BAYER-2015-031429

PATIENT
  Age: 30 Year
  Sex: Male

DRUGS (8)
  1. CEFEPIME [Suspect]
     Active Substance: CEFEPIME\CEFEPIME HYDROCHLORIDE
     Indication: BURKHOLDERIA CEPACIA COMPLEX INFECTION
  2. CEFEPIME [Suspect]
     Active Substance: CEFEPIME\CEFEPIME HYDROCHLORIDE
     Indication: PSEUDOMONAS INFECTION
  3. CHLORAMPHENICOL [Suspect]
     Active Substance: CHLORAMPHENICOL
     Indication: PSEUDOMONAS INFECTION
  4. AMIKACIN [Suspect]
     Active Substance: AMIKACIN
     Indication: PSEUDOMONAS INFECTION
  5. CHLORAMPHENICOL [Suspect]
     Active Substance: CHLORAMPHENICOL
     Indication: BURKHOLDERIA CEPACIA COMPLEX INFECTION
  6. CIPROFLOXACIN. [Suspect]
     Active Substance: CIPROFLOXACIN
     Indication: BURKHOLDERIA CEPACIA COMPLEX INFECTION
  7. CIPROFLOXACIN. [Suspect]
     Active Substance: CIPROFLOXACIN
     Indication: PSEUDOMONAS INFECTION
  8. AMIKACIN [Suspect]
     Active Substance: AMIKACIN
     Indication: BURKHOLDERIA CEPACIA COMPLEX INFECTION

REACTIONS (1)
  - Drug ineffective [None]
